FAERS Safety Report 5607864-4 (Version None)
Quarter: 2008Q1

REPORT INFORMATION
  Report Type: 
  Country: None (occurrence: None)
  Receive Date: 20080130
  Receipt Date: 20071212
  Transmission Date: 20080703
  Serious: Yes (Hospitalization)
  Sender: FDA-Public Use
  Company Number: CN-BAYER-200718413GPV

PATIENT
  Age: 52 Year
  Sex: Male

DRUGS (1)
  1. NEXAVAR [Suspect]
     Indication: HEPATIC NEOPLASM MALIGNANT
     Dosage: TOTAL DAILY DOSE: 800 MG
     Route: 048
     Dates: start: 20071122, end: 20071202

REACTIONS (9)
  - ASTHENIA [None]
  - DIARRHOEA [None]
  - DISTURBANCE IN ATTENTION [None]
  - EPISTAXIS [None]
  - EYELID OEDEMA [None]
  - FACE OEDEMA [None]
  - FATIGUE [None]
  - INSOMNIA [None]
  - SWELLING [None]
